FAERS Safety Report 26087149 (Version 1)
Quarter: 2025Q4

REPORT INFORMATION
  Report Type: Spontaneous
  Country: US (occurrence: None)
  Receive Date: 20251124
  Receipt Date: 20251124
  Transmission Date: 20260118
  Serious: Yes (Other)
  Sender: FDA-CTU
  Company Number: None

PATIENT
  Age: 65 Year
  Sex: Male

DRUGS (3)
  1. MEKINIST [Suspect]
     Active Substance: TRAMETINIB DIMETHYL SULFOXIDE
     Dosage: 2MG DAILY ?
  2. LENVIMA [Suspect]
     Active Substance: LENVATINIB
     Dosage: 16MG DAILY
  3. LISINOPRIL [Suspect]
     Active Substance: LISINOPRIL

REACTIONS (5)
  - Urticaria [None]
  - Blood pressure increased [None]
  - Musculoskeletal stiffness [None]
  - Neoplasm skin [None]
  - Fatigue [None]
